FAERS Safety Report 11605855 (Version 1)
Quarter: 2015Q4

REPORT INFORMATION
  Report Type: Spontaneous
  Country: US (occurrence: None)
  Receive Date: 20151007
  Receipt Date: 20151007
  Transmission Date: 20160304
  Serious: No
  Sender: FDA-Public Use
  Company Number: ADR-2015-01635

PATIENT
  Age: 67 Year
  Sex: Female

DRUGS (2)
  1. MORPHINE INTRATHECAL (585 MCG/ML) [Suspect]
     Active Substance: MORPHINE
     Dosage: 657.75 MCG/DAY; SEE B5
  2. BACLOFEN INTRATHECAL (100 MCG/ML) [Suspect]
     Active Substance: BACLOFEN
     Indication: SPINAL PAIN
     Dosage: 114.14 MCG/DAY

REACTIONS (1)
  - Pain [None]
